FAERS Safety Report 6466998-5 (Version None)
Quarter: 2009Q4

REPORT INFORMATION
  Report Type: 
  Country: None (occurrence: None)
  Receive Date: 20091202
  Receipt Date: 20091120
  Transmission Date: 20100525
  Serious: Yes (Hospitalization, Other)
  Sender: FDA-Public Use
  Company Number: US-ELI_LILLY_AND_COMPANY-US200604002386

PATIENT
  Sex: Female

DRUGS (5)
  1. ZYPREXA [Suspect]
     Indication: BIPOLAR DISORDER
     Dosage: 15 MG, UNKNOWN
     Route: 048
     Dates: start: 19991101, end: 20010101
  2. ZYPREXA [Suspect]
     Dosage: 20 MG, UNK
  3. ZYPREXA [Suspect]
     Dosage: 2.5 MG, UNK
  4. LITHIUM [Concomitant]
     Indication: BIPOLAR DISORDER
     Dates: end: 19991211
  5. ANTIHYPERTENSIVES [Concomitant]
     Indication: HYPERTENSION

REACTIONS (16)
  - AMENORRHOEA [None]
  - ASCITES [None]
  - BLINDNESS [None]
  - BLOOD PRESSURE INCREASED [None]
  - DIZZINESS [None]
  - DRUG TOXICITY [None]
  - DRY MOUTH [None]
  - GASTRIC ULCER HELICOBACTER [None]
  - GENERAL PHYSICAL HEALTH DETERIORATION [None]
  - HYPOTHYROIDISM [None]
  - PANCREATITIS [None]
  - PNEUMONIA [None]
  - RENAL FAILURE [None]
  - SOMNOLENCE [None]
  - VISUAL IMPAIRMENT [None]
  - WEIGHT INCREASED [None]
